FAERS Safety Report 8972325 (Version 3)
Quarter: 2013Q1

REPORT INFORMATION
  Report Type: Report from Study
  Country: US (occurrence: US)
  Receive Date: 20121218
  Receipt Date: 20130215
  Transmission Date: 20140127
  Serious: Yes (Other)
  Sender: FDA-Public Use
  Company Number: US-US-EMD SERONO, INC.-7181731

PATIENT
  Sex: Male

DRUGS (1)
  1. REBIF [Suspect]
     Indication: MULTIPLE SCLEROSIS
     Route: 058
     Dates: start: 20120913

REACTIONS (4)
  - Infected cyst [Not Recovered/Not Resolved]
  - Tremor [Unknown]
  - Muscle spasticity [Unknown]
  - Liver disorder [Unknown]
